FAERS Safety Report 8424981 (Version 2)
Quarter: 2012Q4

REPORT INFORMATION
  Report Type: 
  Country: GB (occurrence: GB)
  Receive Date: 20120224
  Receipt Date: 20120905
  Transmission Date: 20130627
  Serious: Yes (Disabling)
  Sender: FDA-Public Use
  Company Number: GB-WATSON-2012-02858

PATIENT
  Age: 56 Year
  Sex: Female
  Weight: 58 kg

DRUGS (3)
  1. ZOLPIDEM TARTRATE (UNKNOWN) [Suspect]
     Indication: INSOMNIA
     Dosage: 10 mg, unknown
     Route: 065
     Dates: start: 20110301, end: 20120124
  2. DIAZEPAM [Concomitant]
     Indication: ANXIETY
     Dosage: 5 mg, tid as required. Continuing
     Route: 048
     Dates: start: 20000910
  3. OMEPRAZOLE [Concomitant]
     Indication: DYSPEPSIA
     Dosage: 20 mg, daily Continuing
     Route: 048
     Dates: start: 20111027

REACTIONS (5)
  - Somnambulism [Recovered/Resolved]
  - Disorientation [Recovered/Resolved]
  - Agitation [Recovered/Resolved]
  - Hostility [Recovered/Resolved]
  - Amnesia [Recovered/Resolved]
